FAERS Safety Report 8574862-0 (Version None)
Quarter: 2012Q3

REPORT INFORMATION
  Report Type: 
  Country: None (occurrence: None)
  Receive Date: 20120807
  Receipt Date: 20120726
  Transmission Date: 20120928
  Serious: Yes (Hospitalization, Other)
  Sender: FDA-Public Use
  Company Number: GB-ACCORD-014272

PATIENT
  Age: 34 Year
  Sex: Female
  Weight: 80 kg

DRUGS (3)
  1. SEROQUEL [Concomitant]
     Indication: BIPOLAR DISORDER
  2. QUETIAPINE FUMARATE [Suspect]
     Indication: BIPOLAR DISORDER
     Route: 048
     Dates: start: 20120710, end: 20120715
  3. CITALOPRAM HYDROBROMIDE [Concomitant]

REACTIONS (5)
  - PRODUCT SUBSTITUTION ISSUE [None]
  - ANGIOEDEMA [None]
  - URTICARIA [None]
  - HAEMATEMESIS [None]
  - BLISTER [None]
